FAERS Safety Report 7227590-8 (Version None)
Quarter: 2011Q1

REPORT INFORMATION
  Report Type: 
  Country: None (occurrence: None)
  Receive Date: 20110114
  Receipt Date: 20110105
  Transmission Date: 20110831
  Serious: Yes (Other)
  Sender: FDA-Public Use
  Company Number: GB-JNJFOC-20110100919

PATIENT
  Age: 46 Year
  Sex: Male

DRUGS (5)
  1. PARACETAMOL [Suspect]
     Indication: PROCEDURAL PAIN
  2. HERBAL PREPARATIONS [Interacting]
     Indication: PRODUCT USED FOR UNKNOWN INDICATION
  3. IBUPROFEN [Suspect]
     Indication: PROCEDURAL PAIN
  4. VITAMIN TAB [Concomitant]
  5. PARACETAMOL [Suspect]

REACTIONS (2)
  - DRUG INTERACTION [None]
  - POST PROCEDURAL HAEMORRHAGE [None]
